FAERS Safety Report 5684766-9 (Version None)
Quarter: 2008Q1

REPORT INFORMATION
  Report Type: 
  Country: None (occurrence: None)
  Receive Date: 20080328
  Receipt Date: 20070906
  Transmission Date: 20080703
  Serious: No
  Sender: FDA-Public Use
  Company Number: US-BRISTOL-MYERS SQUIBB COMPANY-13900162

PATIENT
  Age: 7 Decade
  Sex: Male

DRUGS (3)
  1. ERBITUX [Suspect]
     Indication: COLORECTAL CANCER
     Route: 042
  2. TYLENOL (CAPLET) [Concomitant]
  3. BENADRYL [Concomitant]
     Route: 042

REACTIONS (1)
  - URTICARIA [None]
